FAERS Safety Report 8211634-0 (Version None)
Quarter: 2012Q1

REPORT INFORMATION
  Report Type: 
  Country: None (occurrence: None)
  Receive Date: 20120315
  Receipt Date: 20120312
  Transmission Date: 20120608
  Serious: No
  Sender: FDA-Public Use
  Company Number: US-PFIZER INC-2012053981

PATIENT
  Age: 41 Year
  Sex: Female
  Weight: 124 kg

DRUGS (15)
  1. ACETYLSALICYLIC ACID [Concomitant]
     Indication: PROPHYLAXIS
     Dosage: UNK
     Dates: start: 20100217
  2. MULTIVITAMIN ^LAPPE^ [Concomitant]
     Indication: PROPHYLAXIS
     Dosage: UNK
     Dates: start: 20080131
  3. ALUMINIUM HYDROXIDE [Concomitant]
     Indication: HYPOMAGNESAEMIA
     Dosage: UNK
     Dates: start: 20070412
  4. ERGOCALCIFEROL [Concomitant]
     Indication: PROPHYLAXIS
     Dosage: UNK
     Dates: start: 20100806
  5. OXYMETAZOLINE HYDROCHLORIDE [Concomitant]
     Indication: HYPERSENSITIVITY
     Dosage: UNK
     Dates: start: 20101107
  6. LIPITOR [Suspect]
     Indication: HYPERTRIGLYCERIDAEMIA
     Dosage: 20 MG, DAILY AT BEDTIME
     Dates: start: 20100318, end: 20110421
  7. LETROZOLE [Concomitant]
     Indication: BREAST CANCER
     Dosage: UNK
     Dates: start: 20100217
  8. TRILIPIX [Suspect]
     Indication: HYPERTRIGLYCERIDAEMIA
     Dosage: 135 MG, DAILY AT BED TIME
     Dates: start: 20100318, end: 20110421
  9. IMODIUM [Concomitant]
     Indication: DIARRHOEA
     Dosage: UNK
  10. METFORMIN HCL [Concomitant]
     Indication: DIABETES MELLITUS
     Dosage: UNK
     Dates: start: 20051103
  11. LEKOVIT CA [Concomitant]
     Indication: PROPHYLAXIS
     Dosage: UNK
     Dates: start: 20080529
  12. OXYMETAZOLINE HYDROCHLORIDE [Concomitant]
     Indication: UPPER RESPIRATORY TRACT INFECTION
  13. MAGNESIUM HYDROXIDE [Concomitant]
     Indication: HYPOMAGNESAEMIA
     Dosage: UNK
     Dates: start: 20070412
  14. INSULIN GLARGINE [Concomitant]
     Indication: DIABETES MELLITUS
     Dosage: UNK
     Dates: start: 20100217
  15. B-KOMPLEX ^LECIVA^ [Concomitant]
     Indication: PROPHYLAXIS
     Dosage: UNK
     Dates: start: 20110401

REACTIONS (1)
  - UPPER RESPIRATORY TRACT INFECTION [None]
